FAERS Safety Report 15254479 (Version 1)
Quarter: 2018Q3

REPORT INFORMATION
  Report Type: Spontaneous
  Country: US (occurrence: US)
  Receive Date: 20180808
  Receipt Date: 20180808
  Transmission Date: 20181010
  Serious: Yes (Hospitalization)
  Sender: FDA-Public Use
  Company Number: US-MYLANLABS-2018M1060489

PATIENT
  Age: 93 Year
  Sex: Female

DRUGS (2)
  1. HYDROCHLORTHIAZID [Concomitant]
     Active Substance: HYDROCHLOROTHIAZIDE
     Indication: PRODUCT USED FOR UNKNOWN INDICATION
  2. CALCITONIN SALMON MYLAN [Suspect]
     Active Substance: CALCITONIN SALMON
     Indication: OSTEOPOROSIS
     Dosage: 200 IU, QD
     Route: 045
     Dates: end: 19980324

REACTIONS (7)
  - Generalised oedema [Unknown]
  - Cushingoid [Unknown]
  - Lipohypertrophy [Unknown]
  - Laceration [Unknown]
  - Fall [Unknown]
  - Periorbital oedema [Unknown]
  - Weight fluctuation [Unknown]

NARRATIVE: CASE EVENT DATE: 199703
